FAERS Safety Report 9998729 (Version 1)
Quarter: 2014Q1

REPORT INFORMATION
  Report Type: Spontaneous
  Country: US (occurrence: US)
  Receive Date: 20140312
  Receipt Date: 20140312
  Transmission Date: 20141002
  Serious: No
  Sender: FDA-Public Use
  Company Number: US-BIOGENIDEC-2014BI019598

PATIENT
  Age: 60 Year
  Sex: Female

DRUGS (5)
  1. TECFIDERA [Suspect]
     Indication: MULTIPLE SCLEROSIS
     Route: 048
  2. ALBUTERAL SULFATE [Concomitant]
  3. METHYLPREDNISOLONE ACETATE [Concomitant]
  4. MONTELUKAST SODIUM [Concomitant]
  5. VALSARTAN-HYDROCHLOROTHIAZIDE [Concomitant]

REACTIONS (1)
  - Muscular weakness [Unknown]
